FAERS Safety Report 5404423-3 (Version None)
Quarter: 2007Q3

REPORT INFORMATION
  Report Type: 
  Country: None (occurrence: None)
  Receive Date: 20070802
  Receipt Date: 20070710
  Transmission Date: 20080115
  Serious: Yes (Death)
  Sender: FDA-Public Use
  Company Number: JP-PFIZER INC-2007063246

PATIENT
  Sex: Male

DRUGS (6)
  1. IRINOTECAN HCL [Suspect]
     Indication: GASTRIC CANCER
     Dates: start: 20070507, end: 20070507
  2. IRINOTECAN HCL [Suspect]
     Route: 042
     Dates: start: 20070702, end: 20070702
  3. TEGAFUR/GIMERACIL/OTERACIL POTASSIUM [Concomitant]
     Route: 048
     Dates: start: 20070507, end: 20070514
  4. TEGAFUR/GIMERACIL/OTERACIL POTASSIUM [Concomitant]
     Route: 048
  5. TEGAFUR/GIMERACIL/OTERACIL POTASSIUM [Concomitant]
     Route: 048
     Dates: start: 20070702, end: 20070704
  6. MYSLEE [Concomitant]
     Indication: INSOMNIA
     Route: 048
     Dates: start: 20070411, end: 20070704

REACTIONS (3)
  - LEUKOPENIA [None]
  - MULTI-ORGAN FAILURE [None]
  - PNEUMONIA [None]
